FAERS Safety Report 8332665-6 (Version None)
Quarter: 2012Q2

REPORT INFORMATION
  Report Type: 
  Country: None (occurrence: None)
  Receive Date: 20120503
  Receipt Date: 20120420
  Transmission Date: 20120825
  Serious: Yes (Hospitalization)
  Sender: FDA-Public Use
  Company Number: BE-JNJFOC-20110305230

PATIENT
  Age: 43 Year
  Sex: Male
  Weight: 88 kg

DRUGS (3)
  1. REMICADE [Suspect]
     Route: 042
     Dates: start: 20070403, end: 20070403
  2. REMICADE [Suspect]
     Indication: CROHN'S DISEASE
     Route: 042
     Dates: start: 20070320
  3. ADALIMUMAB [Concomitant]
     Indication: CROHN'S DISEASE
     Dates: start: 20091001

REACTIONS (2)
  - ILEECTOMY [None]
  - NEPHROLITHIASIS [None]
